FAERS Safety Report 6629482-1 (Version None)
Quarter: 2010Q1

REPORT INFORMATION
  Report Type: 
  Country: None (occurrence: None)
  Receive Date: 20100311
  Receipt Date: 20090721
  Transmission Date: 20100710
  Serious: No
  Sender: FDA-Public Use
  Company Number: US-BIOGENIDEC-2009BI022517

PATIENT
  Sex: Female

DRUGS (2)
  1. AVONEX [Suspect]
     Indication: MULTIPLE SCLEROSIS
     Route: 030
     Dates: start: 20090401, end: 20090601
  2. AVONEX [Suspect]
     Route: 030
     Dates: start: 20090709

REACTIONS (5)
  - CORRECTIVE LENS USER [None]
  - HYPERSENSITIVITY [None]
  - MEMORY IMPAIRMENT [None]
  - RASH [None]
  - STRESS [None]
